FAERS Safety Report 8759686 (Version 2)
Quarter: 2014Q1

REPORT INFORMATION
  Report Type: Report from Study
  Country: AU (occurrence: AU)
  Receive Date: 20120830
  Receipt Date: 20140324
  Transmission Date: 20141002
  Serious: Yes (Hospitalization, Other)
  Sender: FDA-Public Use
  Company Number: AU-ROCHE-1109437

PATIENT
  Age: 67 Year
  Sex: Male
  Weight: 80 kg

DRUGS (2)
  1. TOCILIZUMAB [Suspect]
     Indication: RHEUMATOID ARTHRITIS
     Route: 042
     Dates: start: 20110311, end: 20140306
  2. TOCILIZUMAB [Suspect]
     Route: 042
     Dates: start: 20140306

REACTIONS (2)
  - Chest pain [Unknown]
  - Bronchitis [Not Recovered/Not Resolved]
